FAERS Safety Report 4340890-4 (Version None)
Quarter: 2004Q2

REPORT INFORMATION
  Report Type: 
  Country: None (occurrence: None)
  Receive Date: 20040413
  Receipt Date: 20040405
  Transmission Date: 20050107
  Serious: Yes (Life-Threatening)
  Sender: FDA-Public Use
  Company Number: 2004-01449

PATIENT
  Age: 73 Year
  Sex: Female

DRUGS (2)
  1. METFORMIN HYDROCHLORIDE [Suspect]
     Indication: DIABETES MELLITUS
     Dosage: 1000 MG, BID, ORAL
     Route: 048
  2. WARFARIN SODIUM [Suspect]
     Dosage: 5 MG, DAILY, ORAL
     Route: 048

REACTIONS (3)
  - COAGULOPATHY [None]
  - DRUG INTERACTION [None]
  - LACTIC ACIDOSIS [None]
